FAERS Safety Report 4714247-8 (Version None)
Quarter: 2005Q2

REPORT INFORMATION
  Report Type: 
  Country: None (occurrence: None)
  Receive Date: 20050630
  Receipt Date: 20050225
  Transmission Date: 20051028
  Serious: Yes (Hospitalization, Other)
  Sender: FDA-Public Use
  Company Number: USA040876617

PATIENT
  Age: 45 Year
  Sex: Male

DRUGS (5)
  1. HUMULIN N [Suspect]
     Dates: start: 20000101
  2. HUMULIN R [Suspect]
     Dates: start: 20000101
  3. HUMALOG [Suspect]
     Indication: PANCREATITIS
     Dates: start: 20040917
  4. ILETIN [Suspect]
  5. CHLORPROPAMIDE [Concomitant]

REACTIONS (11)
  - CELLULITIS [None]
  - COMA [None]
  - EATING DISORDER [None]
  - HYPOGLYCAEMIA [None]
  - INFECTION IN AN IMMUNOCOMPROMISED HOST [None]
  - INSOMNIA [None]
  - KELOID SCAR [None]
  - PAIN [None]
  - POSTOPERATIVE INFECTION [None]
  - THERAPEUTIC RESPONSE DELAYED [None]
  - ULCER HAEMORRHAGE [None]
